FAERS Safety Report 12427764 (Version 1)
Quarter: 2016Q2

REPORT INFORMATION
  Report Type: Spontaneous
  Country: US (occurrence: None)
  Receive Date: 20160601
  Receipt Date: 20160601
  Transmission Date: 20160815
  Serious: Yes (Disabling)
  Sender: FDA-Public Use
  Company Number: None

PATIENT
  Age: 58 Year
  Sex: Male
  Weight: 86.18 kg

DRUGS (10)
  1. ADVAIR HFA [Concomitant]
     Active Substance: FLUTICASONE PROPIONATE\SALMETEROL XINAFOATE
  2. VITAMIN D [Concomitant]
     Active Substance: CHOLECALCIFEROL
  3. LOVATHYROXIN [Concomitant]
  4. OXYCODINE [Concomitant]
  5. COLCHICINE .6MG TAB, 6 MG [Suspect]
     Active Substance: COLCHICINE
     Indication: GOUT
     Route: 048
     Dates: start: 20160523, end: 20160530
  6. LOVASTATIN. [Concomitant]
     Active Substance: LOVASTATIN
  7. ALTENOL [Concomitant]
  8. LOSARTIN [Concomitant]
     Active Substance: LOSARTAN
  9. TESTOSTERONE. [Concomitant]
     Active Substance: TESTOSTERONE
  10. ALBUTEROL. [Concomitant]
     Active Substance: ALBUTEROL

REACTIONS (4)
  - Paraesthesia [None]
  - Palpitations [None]
  - Dizziness [None]
  - Cyanosis [None]

NARRATIVE: CASE EVENT DATE: 20160530
